FAERS Safety Report 5236231-0 (Version None)
Quarter: 2007Q1

REPORT INFORMATION
  Report Type: 
  Country: None (occurrence: None)
  Receive Date: 20061208
  Receipt Date: 20060124
  Transmission Date: 20070707
  Serious: Yes (Other)
  Sender: FDA-Public Use
  Company Number: 2006UW01272

PATIENT
  Age: 32 Year
  Sex: Male
  Weight: 122.46 kg

DRUGS (1)
  1. CRESTOR [Suspect]
     Indication: BLOOD CHOLESTEROL INCREASED
     Dosage: 10 MG QD PO
     Route: 048

REACTIONS (2)
  - OCULAR HYPERAEMIA [None]
  - SKIN DISCOLOURATION [None]
